FAERS Safety Report 6909665-3 (Version None)
Quarter: 2010Q3

REPORT INFORMATION
  Report Type: 
  Country: None (occurrence: None)
  Receive Date: 20100805
  Receipt Date: 20100729
  Transmission Date: 20110219
  Serious: Yes (Hospitalization)
  Sender: FDA-Public Use
  Company Number: SG-ABBOTT-10P-141-0660051-00

PATIENT
  Age: 53 Year
  Sex: Male

DRUGS (2)
  1. VALPROATE SODIUM [Suspect]
     Indication: CONVULSION
  2. VALPROATE SODIUM [Suspect]

REACTIONS (5)
  - ACCIDENTAL OVERDOSE [None]
  - CHOREA [None]
  - DRUG TOXICITY [None]
  - LETHARGY [None]
  - VOMITING [None]
